FAERS Safety Report 7702548-0 (Version None)
Quarter: 2011Q3

REPORT INFORMATION
  Report Type: 
  Country: None (occurrence: None)
  Receive Date: 20110823
  Receipt Date: 20110815
  Transmission Date: 20111222
  Serious: No
  Sender: FDA-Public Use
  Company Number: US-BIOGENIDEC-2011BI031251

PATIENT
  Age: 21 Year
  Sex: Male

DRUGS (2)
  1. SOLU-MEDROL [Concomitant]
     Route: 042
  2. TYSABRI [Suspect]
     Indication: MULTIPLE SCLEROSIS
     Route: 042
     Dates: start: 20110812

REACTIONS (2)
  - DRY SKIN [None]
  - SKIN EXFOLIATION [None]
